FAERS Safety Report 16780293 (Version 1)
Quarter: 2019Q3

REPORT INFORMATION
  Report Type: Spontaneous
  Country: US (occurrence: US)
  Receive Date: 20190717
  Receipt Date: 20190717
  Transmission Date: 20191005
  Serious: Yes (Hospitalization, Other)
  Sender: FDA-Public Use
  Company Number: None

PATIENT
  Age: 60 Year
  Sex: Female

DRUGS (10)
  1. FUROSEMIDE. [Concomitant]
     Active Substance: FUROSEMIDE
  2. CITALOPRAM [Concomitant]
     Active Substance: CITALOPRAM HYDROBROMIDE
  3. FOLIC ACID. [Concomitant]
     Active Substance: FOLIC ACID
  4. OPSUMIT [Suspect]
     Active Substance: MACITENTAN
     Indication: PULMONARY EMBOLISM
     Route: 048
     Dates: start: 201701
  5. BUPROPION. [Concomitant]
     Active Substance: BUPROPION
  6. MVI [Concomitant]
     Active Substance: VITAMINS
  7. SPIRONOLACTONE. [Concomitant]
     Active Substance: SPIRONOLACTONE
  8. THIAMINE MONONITRATE [Concomitant]
     Active Substance: THIAMINE MONONITRATE
  9. SILDENAFIL. [Concomitant]
     Active Substance: SILDENAFIL
  10. CALCIUM CARBONATE. [Concomitant]
     Active Substance: CALCIUM CARBONATE

REACTIONS (5)
  - Acute kidney injury [None]
  - Respiratory failure [None]
  - Delirium tremens [None]
  - Hypoxia [None]
  - Ammonia increased [None]

NARRATIVE: CASE EVENT DATE: 20190627
